FAERS Safety Report 16443493 (Version 1)
Quarter: 2019Q2

REPORT INFORMATION
  Report Type: Spontaneous
  Country: GB (occurrence: GB)
  Receive Date: 20190618
  Receipt Date: 20190618
  Transmission Date: 20190711
  Serious: Yes (Other)
  Sender: FDA-Public Use
  Company Number: GB-TEVA-2019-GB-1063329

PATIENT
  Age: 68 Year
  Sex: Female
  Weight: 71 kg

DRUGS (34)
  1. NASEPTIN [Concomitant]
     Active Substance: CHLORHEXIDINE HYDROCHLORIDE\NEOMYCIN SULFATE
     Dosage: THREE TIMES A DAY
     Route: 045
     Dates: start: 20170404
  2. AMOXICILLIN. [Concomitant]
     Active Substance: AMOXICILLIN
     Dosage: NIGHT
     Dates: start: 20170223
  3. OILATUM [Concomitant]
     Dosage: APPLY
     Dates: start: 20170328
  4. HYDROXYZINE [Concomitant]
     Active Substance: HYDROXYZINE HYDROCHLORIDE
     Dosage: NIGHT
     Dates: start: 20170407
  5. XYLOPROCT [Concomitant]
     Dosage: AS DIRECTED.  5%/0.275%
     Dates: start: 20170327
  6. BISOPROLOL [Concomitant]
     Active Substance: BISOPROLOL
     Dates: start: 20170223
  7. CLOBADERM [Concomitant]
     Dosage: AS DIRECTED BY DERMATOLOGIST
     Dates: start: 20161206
  8. DOUBLEBASE [Concomitant]
     Active Substance: ISOPROPYL MYRISTATE\PARAFFIN
     Dosage: AS DIRECTED
     Dates: start: 20170227
  9. METHOCARBAMOL. [Concomitant]
     Active Substance: METHOCARBAMOL
     Dates: start: 20170223
  10. LOPERAMIDE [Concomitant]
     Active Substance: LOPERAMIDE
     Dosage: AS DIRECTED
     Dates: start: 20170223
  11. CYCLIZINE [Concomitant]
     Active Substance: CYCLIZINE
     Dosage: THREE TIMES A DAY
     Dates: start: 20170314
  12. PREDNISOLONE. [Concomitant]
     Active Substance: PREDNISOLONE
     Dosage: FOR 5 DAYS THEN STOP
     Dates: start: 20170329
  13. FEXOFENADINE [Concomitant]
     Active Substance: FEXOFENADINE\FEXOFENADINE HYDROCHLORIDE
     Dates: start: 20170404
  14. METHOCARBAMOL. [Concomitant]
     Active Substance: METHOCARBAMOL
     Dates: start: 20170327
  15. HYDROMOL OINTMENT [Concomitant]
     Active Substance: PARAFFIN\WAX, EMULSIFYING
     Dosage: AS A SOAP SUBSTITUTE / MOISTURISER
     Dates: start: 20170327
  16. LOSARTAN. [Concomitant]
     Active Substance: LOSARTAN
     Dates: start: 20170504
  17. LORATADINE. [Concomitant]
     Active Substance: LORATADINE
     Dates: start: 20161206
  18. LEVOTHYROXINE SODIUM. [Concomitant]
     Active Substance: LEVOTHYROXINE SODIUM
     Dates: start: 20170227
  19. SYSTANE (HYPROMELLOSE 2910 (4000 MPA.S)) [Concomitant]
     Active Substance: HYPROMELLOSE 2910 (4000 MPA.S)
     Dosage: APPLY ONE OR TWO DROPS INTO AFFECTED EYE(S)
     Route: 047
     Dates: start: 20170228
  20. AMLODIPINE [Suspect]
     Active Substance: AMLODIPINE BESYLATE
  21. CALCEOS [Concomitant]
     Active Substance: CALCIUM CARBONATE\CHOLECALCIFEROL
     Dosage: 500MG/400UNIT
     Dates: start: 20160304
  22. DAKTACORT [Concomitant]
     Active Substance: HYDROCORTISONE\MICONAZOLE NITRATE
     Dosage: 14 DAYS
     Dates: start: 20170327
  23. BUSCOPAN [Concomitant]
     Active Substance: BUTYLSCOPOLAMINE BROMIDE
     Dosage: QDS
     Dates: start: 20170227
  24. DIPROBASE [Concomitant]
     Active Substance: CHLOROCRESOL
     Dosage: APPLY
     Dates: start: 20170418
  25. OVESTIN [Concomitant]
     Active Substance: ESTRIOL
     Dosage: APPLICATOR DAILY FOR 2-3 WEEKS AND THEN ONE APPLICATOR FULL TWICE A WEEK FOR 2-3 MONTHS.
     Dates: start: 20170131
  26. OMEPRAZOLE. [Concomitant]
     Active Substance: OMEPRAZOLE
     Dosage: DOSE REDUCED TO MAINTENANCE DOSE)
     Dates: start: 20170223
  27. EZETIMIBE. [Concomitant]
     Active Substance: EZETIMIBE
     Dates: start: 20170223
  28. AMITRIPTYLINE [Concomitant]
     Active Substance: AMITRIPTYLINE
     Dosage: NIGHT
     Dates: start: 20170223
  29. INDAPAMIDE. [Concomitant]
     Active Substance: INDAPAMIDE
     Dosage: .
     Dates: start: 20170223, end: 20170404
  30. SYNALAR [Concomitant]
     Active Substance: FLUOCINOLONE ACETONIDE
     Dosage: AS DIRECTED BY DERMATOLOGIST
     Dates: start: 20161206
  31. RAMIPRIL. [Concomitant]
     Active Substance: RAMIPRIL
     Dates: start: 20170223
  32. COCODAMOL [Concomitant]
     Active Substance: ACETAMINOPHEN\CODEINE PHOSPHATE
     Dosage: 1-2 TABS FOUR TIMES A DAY 30MG/500MG
     Dates: start: 20160817
  33. IBUGEL [Concomitant]
     Active Substance: IBUPROFEN
     Dosage: APPLY TO THE AFFECTED AREA(S)
     Dates: start: 20170228
  34. LEVOTHYROXINE SODIUM. [Concomitant]
     Active Substance: LEVOTHYROXINE SODIUM
     Dates: start: 20170227

REACTIONS (1)
  - Peripheral swelling [Recovered/Resolved]

NARRATIVE: CASE EVENT DATE: 20170424
